FAERS Safety Report 12537707 (Version 1)
Quarter: 2016Q3

REPORT INFORMATION
  Report Type: Spontaneous
  Country: US (occurrence: US)
  Receive Date: 20160707
  Receipt Date: 20160707
  Transmission Date: 20161109
  Serious: Yes (Hospitalization)
  Sender: FDA-Public Use
  Company Number: US-MYLANLABS-2016M1027895

PATIENT

DRUGS (1)
  1. PENTOBARBITAL. [Suspect]
     Active Substance: PENTOBARBITAL
     Indication: INTRACRANIAL PRESSURE INCREASED
     Dosage: 2 MG/KG/HR WITH Q2HR ELECTROLYTE MONITORING
     Route: 050

REACTIONS (3)
  - Hypotension [Unknown]
  - Hypokalaemia [Recovering/Resolving]
  - Acute kidney injury [Unknown]
